FAERS Safety Report 14912382 (Version 1)
Quarter: 2018Q2

REPORT INFORMATION
  Report Type: Spontaneous
  Country: US (occurrence: US)
  Receive Date: 20180501
  Receipt Date: 20180501
  Transmission Date: 20180711
  Serious: No
  Sender: FDA-Public Use
  Company Number: None

PATIENT
  Age: 62 Year
  Sex: Female
  Weight: 65.77 kg

DRUGS (8)
  1. VITAMIN D3 [Concomitant]
     Active Substance: CHOLECALCIFEROL
  2. ZANTAC [Concomitant]
     Active Substance: RANITIDINE HYDROCHLORIDE
  3. VITAMIN B COMPLEX [Concomitant]
     Active Substance: CYANOCOBALAMIN\DEXPANTHENOL\NIACINAMIDE\PYRIDOXINE HYDROCHLORIDE\RIBOFLAVIN 5^-PHOSPHATE SODIUM\THIAMINE HYDROCHLORIDE\VITAMIN B COMPLEX
  4. MAGNESIUM [Concomitant]
     Active Substance: MAGNESIUM
  5. XANAX [Concomitant]
     Active Substance: ALPRAZOLAM
  6. ZINC. [Concomitant]
     Active Substance: ZINC
  7. CENTRUM SILVER [Concomitant]
     Active Substance: MINERALS\VITAMINS
  8. CHLORHEXIDINE GLUCONATE ORAL RINSE 0.12% [Suspect]
     Active Substance: CHLORHEXIDINE GLUCONATE
     Indication: TONGUE BITING
     Dosage: ?          QUANTITY:1 DF DOSAGE FORM;?
     Route: 048
     Dates: start: 20180206

REACTIONS (12)
  - Tongue disorder [None]
  - Tongue blistering [None]
  - Paraesthesia oral [None]
  - Stomatitis [None]
  - Oral discomfort [None]
  - Ageusia [None]
  - Paraesthesia [None]
  - Glossodynia [None]
  - Dry mouth [None]
  - Cheilitis [None]
  - Oral mucosal blistering [None]
  - Lip dry [None]
